FAERS Safety Report 6720556-3 (Version None)
Quarter: 2010Q2

REPORT INFORMATION
  Report Type: 
  Country: None (occurrence: None)
  Receive Date: 20100511
  Receipt Date: 20100511
  Transmission Date: 20101027
  Serious: Yes (Other)
  Sender: FDA-Public Use
  Company Number: None

PATIENT
  Sex: Female
  Weight: 87.0906 kg

DRUGS (1)
  1. FENTANYL [Suspect]
     Indication: PAIN
     Dosage: 1 PATCH EVERY 48 HRS
     Dates: start: 20100401

REACTIONS (7)
  - DEPRESSION [None]
  - DEVICE COMPONENT ISSUE [None]
  - DRUG INEFFECTIVE [None]
  - INSOMNIA [None]
  - PAIN [None]
  - PRODUCT PACKAGING ISSUE [None]
  - TREATMENT FAILURE [None]
